FAERS Safety Report 5310029-7 (Version None)
Quarter: 2007Q2

REPORT INFORMATION
  Report Type: 
  Country: None (occurrence: None)
  Receive Date: 20070427
  Receipt Date: 20070425
  Transmission Date: 20071010
  Serious: Yes (Other)
  Sender: FDA-Public Use
  Company Number: US-GLAXOSMITHKLINE-A0648725A

PATIENT
  Age: 72 Year
  Sex: Male

DRUGS (3)
  1. COREG [Suspect]
     Indication: CARDIAC FAILURE CONGESTIVE
     Dosage: 3.125MG PER DAY
     Route: 048
     Dates: start: 20070225
  2. LISINOPRIL [Concomitant]
  3. LASIX [Concomitant]

REACTIONS (2)
  - HAEMORRHAGE [None]
  - INCREASED TENDENCY TO BRUISE [None]
